FAERS Safety Report 9324399 (Version 1)
Quarter: 2013Q2

REPORT INFORMATION
  Report Type: Spontaneous
  Country: NL (occurrence: NL)
  Receive Date: 20130603
  Receipt Date: 20130603
  Transmission Date: 20140414
  Serious: Yes (Hospitalization)
  Sender: FDA-Public Use
  Company Number: NL-TEVA-407593ISR

PATIENT
  Age: 77 Year
  Sex: Female
  Weight: 92 kg

DRUGS (5)
  1. METHOTREXATE TABLET 2,5MG [Suspect]
     Indication: POLYMYALGIA RHEUMATICA
     Dosage: STRENGTH:2.5MG
     Route: 048
     Dates: start: 20121219, end: 20130327
  2. ATORVASTATINE TABLET 20MG (ALS CA-ZOUT-3-WATER) [Concomitant]
     Dosage: 20 MILLIGRAM DAILY;
     Route: 048
  3. FUROSEMIDE TABLET 40MG [Concomitant]
     Dosage: 40 MILLIGRAM DAILY; STRENGTH: 40MG
     Route: 048
  4. PREDNISOLON TABLET  5MG [Concomitant]
     Dosage: STRENGTH: 5MG, 3 TABLETS ONCE A DAY
     Route: 048
     Dates: start: 2011
  5. METFORMINE TABLET  500MG [Concomitant]
     Dosage: 1500 MILLIGRAM DAILY; 1 TABLET X 3 / DAY
     Route: 048

REACTIONS (1)
  - Interstitial lung disease [Recovered/Resolved]
